FAERS Safety Report 7121436-4 (Version None)
Quarter: 2010Q4

REPORT INFORMATION
  Report Type: 
  Country: None (occurrence: None)
  Receive Date: 20101124
  Receipt Date: 20101118
  Transmission Date: 20110411
  Serious: Yes (Death, Hospitalization)
  Sender: FDA-Public Use
  Company Number: PHHO2010TH17442

PATIENT
  Sex: Female

DRUGS (1)
  1. AFINITOR [Suspect]
     Indication: METASTATIC RENAL CELL CARCINOMA
     Dosage: 10 MG, QD
     Route: 048
     Dates: start: 20100823, end: 20101109

REACTIONS (7)
  - CARDIO-RESPIRATORY ARREST [None]
  - ENDOTRACHEAL INTUBATION [None]
  - ENTEROCOCCAL INFECTION [None]
  - METASTASES TO LUNG [None]
  - PSEUDOMONAS INFECTION [None]
  - RESPIRATORY FAILURE [None]
  - URINARY TRACT INFECTION [None]
